FAERS Safety Report 16256063 (Version 1)
Quarter: 2019Q2

REPORT INFORMATION
  Report Type: Spontaneous
  Country: CH (occurrence: CH)
  Receive Date: 20190430
  Receipt Date: 20190430
  Transmission Date: 20190711
  Serious: Yes (Other)
  Sender: FDA-Public Use
  Company Number: CH-TEVA-2019-CH-1043647

PATIENT
  Age: 14 Year
  Sex: Male

DRUGS (2)
  1. CEFUROXIME. [Suspect]
     Active Substance: CEFUROXIME
     Indication: DRUG PROVOCATION TEST
     Route: 048
  2. AMOXICILLIN W/CLAVULANIC ACID [Suspect]
     Active Substance: AMOXICILLIN\CLAVULANIC ACID
     Indication: SKIN INFECTION
     Route: 048

REACTIONS (2)
  - Therapeutic product cross-reactivity [Unknown]
  - Type IV hypersensitivity reaction [Unknown]
